FAERS Safety Report 6061419-9 (Version None)
Quarter: 2009Q1

REPORT INFORMATION
  Report Type: 
  Country: None (occurrence: None)
  Receive Date: 20090129
  Receipt Date: 20090129
  Transmission Date: 20090719
  Serious: Yes (Other)
  Sender: FDA-Public Use
  Company Number: None

PATIENT
  Sex: Male
  Weight: 87.0906 kg

DRUGS (1)
  1. FLOMAX [Suspect]
     Indication: CALCULUS URETERIC
     Dates: start: 20060509, end: 20060511

REACTIONS (1)
  - MUSCLE SPASMS [None]
